FAERS Safety Report 6741929-9 (Version None)
Quarter: 2010Q2

REPORT INFORMATION
  Report Type: 
  Country: None (occurrence: None)
  Receive Date: 20100526
  Receipt Date: 20100517
  Transmission Date: 20101027
  Serious: Yes (Death, Hospitalization)
  Sender: FDA-Public Use
  Company Number: B0648991A

PATIENT
  Sex: Male
  Weight: 65 kg

DRUGS (15)
  1. ARIXTRA [Suspect]
     Indication: DEEP VEIN THROMBOSIS
     Dosage: 7.5MG PER DAY
     Route: 058
     Dates: start: 20091120, end: 20091201
  2. AUGMENTIN '125' [Concomitant]
     Indication: BACTERIAL INFECTION
     Route: 065
     Dates: start: 20091023
  3. ROCEPHIN [Concomitant]
     Route: 065
     Dates: start: 20091101
  4. LERCAN [Concomitant]
     Dosage: 10MG TWICE PER DAY
     Route: 048
  5. HYPERIUM [Concomitant]
     Dosage: 1MG PER DAY
     Route: 048
  6. IRBESARTAN [Concomitant]
     Dosage: 150MG PER DAY
     Route: 048
  7. TAHOR [Concomitant]
     Dosage: 10MG PER DAY
     Route: 048
  8. NORSET [Concomitant]
     Indication: DEPRESSION
     Dosage: 15MG PER DAY
     Route: 048
  9. TADENAN [Concomitant]
     Route: 048
  10. FORLAX [Concomitant]
     Indication: CONSTIPATION
     Route: 048
  11. ALFUZOSIN HCL [Concomitant]
     Indication: BENIGN PROSTATIC HYPERPLASIA
     Route: 048
  12. IMOVANE [Concomitant]
     Indication: INSOMNIA
     Route: 048
  13. EXELON [Concomitant]
     Route: 048
  14. DAFALGAN [Concomitant]
     Indication: PAIN
     Route: 048
  15. OFLOCET [Concomitant]
     Indication: BACTERIAL INFECTION
     Route: 065
     Dates: start: 20091023

REACTIONS (13)
  - ANAEMIA [None]
  - ANURIA [None]
  - ARTERIAL BRUIT [None]
  - CONFUSIONAL STATE [None]
  - DISORIENTATION [None]
  - GENERAL PHYSICAL HEALTH DETERIORATION [None]
  - HYPERLACTACIDAEMIA [None]
  - HYPOTENSION [None]
  - HYPOVOLAEMIC SHOCK [None]
  - PALLOR [None]
  - PLEURAL EFFUSION [None]
  - RENAL FAILURE ACUTE [None]
  - RETROPERITONEAL HAEMATOMA [None]
